FAERS Safety Report 4586457-4 (Version None)
Quarter: 2005Q1

REPORT INFORMATION
  Report Type: 
  Country: None (occurrence: None)
  Receive Date: 20050218
  Receipt Date: 20050209
  Transmission Date: 20050727
  Serious: Yes (Hospitalization)
  Sender: FDA-Public Use
  Company Number: 200511040US

PATIENT
  Sex: Female

DRUGS (2)
  1. TAXOTERE [Suspect]
     Indication: LUNG NEOPLASM MALIGNANT
     Route: 042
     Dates: start: 20050118, end: 20050208
  2. UNKNOWN DRUG [Concomitant]
     Dosage: DOSE: NOT PROVIDED

REACTIONS (5)
  - BACK PAIN [None]
  - DYSPNOEA [None]
  - HYPERSENSITIVITY [None]
  - HYPOXIA [None]
  - RESPIRATORY FAILURE [None]
